FAERS Safety Report 14345693 (Version 1)
Quarter: 2018Q1

REPORT INFORMATION
  Report Type: Spontaneous
  Country: US (occurrence: US)
  Receive Date: 20180103
  Receipt Date: 20180103
  Transmission Date: 20180509
  Serious: No
  Sender: FDA-Public Use
  Company Number: US-TARO-2017TAR00495

PATIENT
  Sex: Male
  Weight: 92.97 kg

DRUGS (6)
  1. PROCTOSOL-HC [Suspect]
     Active Substance: HYDROCORTISONE
     Indication: PROCTITIS
     Dosage: UNK
     Route: 061
  2. PROCTOSOL-HC [Suspect]
     Active Substance: HYDROCORTISONE
     Indication: FUNGAL INFECTION
  3. PROCTOSOL-HC [Suspect]
     Active Substance: HYDROCORTISONE
     Indication: WOUND DRAINAGE
  4. PROCTOSOL-HC [Suspect]
     Active Substance: HYDROCORTISONE
     Indication: SKIN DISORDER
  5. CLOTRIMAZOLE/BETAMETHASONE/DIPROPIONAPE USP 1% (FOUGERA PRODUCT) [Concomitant]
     Dosage: UNK
  6. ZEASORB [Concomitant]
     Active Substance: MICONAZOLE NITRATE

REACTIONS (10)
  - Product quality issue [Unknown]
  - Product substitution issue [Unknown]
  - Drug ineffective [Not Recovered/Not Resolved]
  - Off label use [Not Recovered/Not Resolved]
  - Wound drainage [Not Recovered/Not Resolved]
  - Inappropriate schedule of drug administration [Unknown]
  - Drug ineffective for unapproved indication [None]
  - Skin disorder [Not Recovered/Not Resolved]
  - Condition aggravated [None]
  - Drug effect delayed [None]
